FAERS Safety Report 5384983-1 (Version None)
Quarter: 2007Q3

REPORT INFORMATION
  Report Type: 
  Country: None (occurrence: None)
  Receive Date: 20070712
  Receipt Date: 20070706
  Transmission Date: 20080115
  Serious: Yes (Life-Threatening)
  Sender: FDA-Public Use
  Company Number: HQWYE740116NOV06

PATIENT
  Age: 84 Year
  Sex: Female

DRUGS (9)
  1. PROPRANOLOL HYDROCHLORIDE [Suspect]
     Route: 048
  2. MOTILIUM [Suspect]
     Indication: NAUSEA
     Dosage: UNSPECIFIED
     Route: 048
     Dates: end: 20061001
  3. MOTILIUM [Suspect]
     Indication: VOMITING
  4. POTASSIUM CHLORIDE [Concomitant]
     Dosage: UNSPECIFIED
     Route: 048
     Dates: end: 20061001
  5. PAROXETINE HCL [Suspect]
     Route: 048
  6. PANTOPRAZOLE SODIUM [Suspect]
     Indication: DIAPHRAGMATIC HERNIA
     Route: 048
  7. FORLAX [Concomitant]
     Dosage: UNSPECIFIED
     Route: 048
  8. NEO-MERCAZOLE TAB [Suspect]
     Indication: HYPERTHYROIDISM
     Route: 048
     Dates: start: 20061001, end: 20061018
  9. PERINDOPRIL ERBUMINE [Suspect]
     Route: 048

REACTIONS (3)
  - ANAEMIA [None]
  - CONDITION AGGRAVATED [None]
  - LEUKOPENIA [None]
